FAERS Safety Report 5284487-0 (Version None)
Quarter: 2007Q1

REPORT INFORMATION
  Report Type: 
  Country: None (occurrence: None)
  Receive Date: 20070330
  Receipt Date: 20070330
  Transmission Date: 20070707
  Serious: Yes (Hospitalization)
  Sender: FDA-Public Use
  Company Number: None

PATIENT
  Age: 55 Year
  Sex: Male

DRUGS (1)
  1. ERBITUX [Suspect]
     Indication: NEOPLASM MALIGNANT
     Dosage: 400 MG/M2 -890 MG- FIRST DOSE IV
     Route: 042
     Dates: start: 20070319, end: 20070319

REACTIONS (1)
  - MENINGITIS ASEPTIC [None]
